FAERS Safety Report 8832019 (Version 1)
Quarter: 2012Q4

REPORT INFORMATION
  Report Type: 
  Country: IT (occurrence: IT)
  Receive Date: 20121009
  Receipt Date: 20121009
  Transmission Date: 20130627
  Serious: Yes (Hospitalization)
  Sender: FDA-Public Use
  Company Number: IT-JNJFOC-20120912246

PATIENT
  Age: 19 Year
  Sex: Male

DRUGS (1)
  1. INFLIXIMAB, RECOMBINANT [Suspect]
     Indication: HIDRADENITIS
     Dosage: weeks 0, 2, 6 and then every 8 weeks
     Route: 042
     Dates: start: 201003

REACTIONS (1)
  - Acne [Unknown]
